FAERS Safety Report 17147058 (Version 1)
Quarter: 2019Q4

REPORT INFORMATION
  Report Type: Spontaneous
  Country: US (occurrence: US)
  Receive Date: 20191212
  Receipt Date: 20191212
  Transmission Date: 20200122
  Serious: No
  Sender: FDA-Public Use
  Company Number: US-JNJFOC-20191205782

PATIENT
  Sex: Female
  Weight: 92.62 kg

DRUGS (1)
  1. ZYRTEC [Suspect]
     Active Substance: CETIRIZINE HYDROCHLORIDE
     Indication: SEASONAL ALLERGY
     Dosage: ONE TABLET ONCE A DAY DEPENDS ON THE SYMPTOM?LAST DOSE ADMIN: 01/DEC/2019
     Route: 048

REACTIONS (2)
  - Dizziness [Recovered/Resolved]
  - Renal pain [Recovering/Resolving]
